FAERS Safety Report 6628263-2 (Version None)
Quarter: 2010Q1

REPORT INFORMATION
  Report Type: 
  Country: None (occurrence: None)
  Receive Date: 20100311
  Receipt Date: 20100303
  Transmission Date: 20100710
  Serious: Yes (Other)
  Sender: FDA-Public Use
  Company Number: FR-ASTRAZENECA-2010SE09720

PATIENT
  Age: 66 Year
  Sex: Female

DRUGS (1)
  1. CANDESARTAN CILEXETIL/HYDROCHLOROTHIAZIDE (ATACAND HCT) [Suspect]
     Indication: HYPERTENSION
     Dosage: 8+12.5 MG DAILY
     Route: 048
     Dates: start: 20100201, end: 20100303

REACTIONS (1)
  - SERUM SICKNESS [None]
